FAERS Safety Report 15370842 (Version 2)
Quarter: 2018Q4

REPORT INFORMATION
  Report Type: Report from Study
  Country: ZA (occurrence: ZA)
  Receive Date: 20180911
  Receipt Date: 20181001
  Transmission Date: 20190204
  Serious: Yes (Congenital Anomaly, Other)
  Sender: FDA-Public Use
  Company Number: ZA-MYLANLABS-2018M1066646

PATIENT
  Age: 0 Year
  Sex: Female
  Weight: 3.2 kg

DRUGS (2)
  1. NEVIRAPINE. [Suspect]
     Active Substance: NEVIRAPINE
     Indication: HIV INFECTION
     Dosage: 1.5 ML, QD
     Route: 064
     Dates: start: 20180529
  2. DOLUTEGRAVIR [Suspect]
     Active Substance: DOLUTEGRAVIR
     Indication: HIV INFECTION
     Dosage: UNK
     Route: 064
     Dates: start: 20180522

REACTIONS (2)
  - Foetal exposure during pregnancy [Recovered/Resolved]
  - Umbilical hernia [Unknown]

NARRATIVE: CASE EVENT DATE: 20180522
